FAERS Safety Report 11174439 (Version 2)
Quarter: 2015Q2

REPORT INFORMATION
  Report Type: Spontaneous
  Country: FR (occurrence: FR)
  Receive Date: 20150609
  Receipt Date: 20150623
  Transmission Date: 20150821
  Serious: Yes (Death, Hospitalization)
  Sender: FDA-Public Use
  Company Number: FR-SA-2015SA077991

PATIENT
  Age: 83 Year
  Sex: Male

DRUGS (5)
  1. MONICOR [Suspect]
     Active Substance: ISOSORBIDE MONONITRATE
     Route: 048
  2. TENORMIN [Suspect]
     Active Substance: ATENOLOL
     Route: 048
  3. PREVISCAN [Concomitant]
     Active Substance: FLUINDIONE
  4. LASILIX FAIBLE [Suspect]
     Active Substance: FUROSEMIDE
     Route: 048
  5. PRADAXA [Suspect]
     Active Substance: DABIGATRAN ETEXILATE MESYLATE
     Route: 048

REACTIONS (2)
  - Shock haemorrhagic [Fatal]
  - Melaena [Fatal]

NARRATIVE: CASE EVENT DATE: 20141231
